FAERS Safety Report 9993786 (Version 2)
Quarter: 2014Q1

REPORT INFORMATION
  Report Type: Spontaneous
  Country: US (occurrence: US)
  Receive Date: 20140310
  Receipt Date: 20140310
  Transmission Date: 20141002
  Serious: No
  Sender: FDA-Public Use
  Company Number: US-AMGEN-USASP2013042024

PATIENT
  Age: 64 Year
  Sex: Female
  Weight: 150.6 kg

DRUGS (14)
  1. SENSIPAR [Suspect]
     Indication: HYPERPARATHYROIDISM PRIMARY
     Dosage: 30 MG, QD
     Dates: start: 20130505, end: 20130531
  2. VICTOZA [Concomitant]
     Dosage: 1.8 UNK, QD
  3. FUROSEMIDE [Concomitant]
     Dosage: 20 MG, QD
  4. LISINOPRIL [Concomitant]
     Dosage: 20 MG, QD
  5. LEVOTHYROXINE [Concomitant]
     Dosage: 112 MUG, QD
  6. LIPITOR [Concomitant]
     Dosage: 20 MG, QD
  7. DILTIAZEM [Concomitant]
     Dosage: 240 UNK, QD
  8. METFORMIN HYDROCHLORIDE [Concomitant]
     Dosage: 500 MG, UNK, 4 TIMES A DAY
  9. ASPIRIN [Concomitant]
     Dosage: 325 MG, QD
  10. LANTUS [Concomitant]
     Dosage: 75 UNK, QD
  11. MAGNESIUM [Concomitant]
     Dosage: 250 MG, QD
  12. TOPIRAMATE [Concomitant]
     Dosage: 50 MG, QD
  13. MONTELUKAST SODIUM [Concomitant]
     Dosage: 10 MG, QD
  14. FLUTICASONE PROPIONATE [Concomitant]
     Dosage: 50 MUG, 1 SPRAY PER NASAL

REACTIONS (1)
  - Muscle spasms [Recovered/Resolved]
